FAERS Safety Report 8340054-3 (Version None)
Quarter: 2012Q2

REPORT INFORMATION
  Report Type: 
  Country: None (occurrence: None)
  Receive Date: 20120507
  Receipt Date: 20090520
  Transmission Date: 20120825
  Serious: Yes (Hospitalization)
  Sender: FDA-Public Use
  Company Number: US-TEVA-2009002055

PATIENT
  Sex: Female
  Weight: 57.658 kg

DRUGS (3)
  1. ALLOPURINOL [Suspect]
     Dates: start: 20090209, end: 20090216
  2. TREANDA [Suspect]
     Indication: CHRONIC LYMPHOCYTIC LEUKAEMIA
     Dosage: 100 MG/M2;
     Route: 042
     Dates: start: 20090209, end: 20090210
  3. TREANDA [Suspect]
     Route: 042

REACTIONS (5)
  - ASTHENIA [None]
  - RASH MACULO-PAPULAR [None]
  - STOMATITIS [None]
  - WEIGHT DECREASED [None]
  - PYREXIA [None]
